FAERS Safety Report 5861174-9 (Version None)
Quarter: 2008Q3

REPORT INFORMATION
  Report Type: 
  Country: None (occurrence: None)
  Receive Date: 20080827
  Receipt Date: 20080519
  Transmission Date: 20090109
  Serious: No
  Sender: FDA-Public Use
  Company Number: US-ABBOTT-08P-163-0441718-00

PATIENT
  Age: 84 Year
  Sex: Male
  Weight: 95.34 kg

DRUGS (1)
  1. NIASPAN [Suspect]
     Indication: BLOOD CHOLESTEROL INCREASED
     Dosage: 1000MG EVERY MORNING AND EVENING
     Route: 048
     Dates: start: 20070101

REACTIONS (1)
  - NIGHT SWEATS [None]
